FAERS Safety Report 26016260 (Version 1)
Quarter: 2025Q4

REPORT INFORMATION
  Report Type: Spontaneous
  Country: US (occurrence: US)
  Receive Date: 20251110
  Receipt Date: 20251110
  Transmission Date: 20260117
  Serious: Yes (Hospitalization)
  Sender: APOTEX
  Company Number: US-APOTEX-2025AP032473

PATIENT
  Age: 6 Year
  Sex: Male

DRUGS (2)
  1. DEXAMETHASONE [Suspect]
     Active Substance: DEXAMETHASONE
     Indication: Steroid therapy
     Dosage: UNK
     Route: 065
  2. CALASPARGASE PEGOL [Concomitant]
     Active Substance: CALASPARGASE PEGOL
     Indication: B-cell type acute leukaemia
     Dosage: 2500 UNITS/M2, 7 DOSES
     Route: 065

REACTIONS (1)
  - Hyperglycaemia [Unknown]
